FAERS Safety Report 24771841 (Version 2)
Quarter: 2025Q3

REPORT INFORMATION
  Report Type: Spontaneous
  Country: BR (occurrence: BR)
  Receive Date: 20241224
  Receipt Date: 20250810
  Transmission Date: 20251020
  Serious: Yes (Hospitalization, Other)
  Sender: ALEXION PHARMACEUTICALS
  Company Number: BR-AstraZeneca-CH-00770049A

PATIENT
  Age: 52 Year
  Sex: Male

DRUGS (1)
  1. XIGDUO XR [Suspect]
     Active Substance: DAPAGLIFLOZIN PROPANEDIOL\METFORMIN HYDROCHLORIDE
     Route: 065

REACTIONS (4)
  - Necrotising fasciitis [Unknown]
  - Fournier^s gangrene [Unknown]
  - General physical condition abnormal [Unknown]
  - Emotional distress [Unknown]
